FAERS Safety Report 10375922 (Version 1)
Quarter: 2014Q1

REPORT INFORMATION
  Report Type: Spontaneous
  Country: US (occurrence: None)
  Receive Date: 20140306
  Receipt Date: 20140306
  Transmission Date: 20141002
  Serious: Yes (Other)
  Sender: FDA-Public Use
  Company Number: 163-21880-13034742

PATIENT
  Age: 92 Year
  Sex: Female
  Weight: 71.67 kg

DRUGS (10)
  1. REVLIMID (LENALIDOMIDE) (10 MILLIGRAM, CAPSULES) [Suspect]
     Indication: LEUKAEMIA
     Dosage: 21 IN 21 D
     Route: 048
     Dates: start: 201202
  2. ASPIRIN EC (ACETYLSALICYLIC ACID) (TABLETS) [Concomitant]
  3. CALCIUM CITRATE-VITAMIN D (CALCIUM CITRATE W/COLECALCIFEROL) (UNKNOWN) [Concomitant]
  4. CELEBREX (CELECOXIB) (CAPSULES) [Concomitant]
  5. CENTRUM SILVER (CENTRUM SILVER) (CAPSULES) [Concomitant]
  6. LASIX (FUROSEMIDE) (TABLETS) [Concomitant]
  7. NEXIUM (ESOMEPRAZOLE) (CAPSULES) [Concomitant]
  8. OSTEO BI-FLEX [Concomitant]
  9. POTASSIUM [Concomitant]
  10. PROCRIT (ERYTHROPOIETIN) (TABLETS) [Concomitant]

REACTIONS (1)
  - Full blood count decreased [None]
